FAERS Safety Report 7706899-5 (Version None)
Quarter: 2011Q3

REPORT INFORMATION
  Report Type: 
  Country: None (occurrence: None)
  Receive Date: 20110824
  Receipt Date: 20110816
  Transmission Date: 20111222
  Serious: Yes (Death, Hospitalization)
  Sender: FDA-Public Use
  Company Number: US-GLAXOSMITHKLINE-A0931944A

PATIENT
  Age: 64 Year
  Sex: Male
  Weight: 66 kg

DRUGS (3)
  1. VOTRIENT [Suspect]
     Indication: RENAL CANCER
     Dosage: 600MG PER DAY
     Route: 048
     Dates: start: 20110301, end: 20110601
  2. ATENOLOL [Concomitant]
     Indication: HYPERTENSION
     Dosage: 25MG PER DAY
     Dates: start: 20110201
  3. SYNTHROID [Concomitant]
     Indication: HYPOTHYROIDISM
     Dosage: 50MCG PER DAY
     Dates: start: 20110101

REACTIONS (12)
  - DEHYDRATION [None]
  - FATIGUE [None]
  - PERFORMANCE STATUS DECREASED [None]
  - BLOOD CREATININE INCREASED [None]
  - BLOOD POTASSIUM INCREASED [None]
  - ASCITES [None]
  - DEATH [None]
  - DISEASE COMPLICATION [None]
  - HYPOTENSION [None]
  - GALLBLADDER OEDEMA [None]
  - DRUG INEFFECTIVE [None]
  - ASTHENIA [None]
